FAERS Safety Report 5233639-4 (Version None)
Quarter: 2007Q1

REPORT INFORMATION
  Report Type: 
  Country: None (occurrence: None)
  Receive Date: 20070208
  Receipt Date: 20070206
  Transmission Date: 20070707
  Serious: Yes (Death, Life-Threatening)
  Sender: FDA-Public Use
  Company Number: JP-BAYER-200710113BYL

PATIENT
  Age: 86 Year
  Sex: Female

DRUGS (2)
  1. CIPROXAN-I.V. [Suspect]
     Indication: URINARY TRACT INFECTION
     Dosage: TOTAL DAILY DOSE: 400 MG  UNIT DOSE: 200 MG
     Route: 042
     Dates: start: 20070123, end: 20070126
  2. LAXATIVES [Concomitant]

REACTIONS (3)
  - HYPOGLYCAEMIA [None]
  - METABOLIC ACIDOSIS [None]
  - RENAL IMPAIRMENT [None]
